FAERS Safety Report 13967280 (Version 1)
Quarter: 2017Q3

REPORT INFORMATION
  Report Type: Report from Study
  Country: CA (occurrence: CA)
  Receive Date: 20170914
  Receipt Date: 20170914
  Transmission Date: 20171128
  Serious: Yes (Hospitalization, Other)
  Sender: FDA-Public Use
  Company Number: CA-AMGEN-CANSL2017136894

PATIENT
  Age: 85 Year
  Sex: Female

DRUGS (5)
  1. PROLIA [Suspect]
     Active Substance: DENOSUMAB
     Indication: OSTEOPOROSIS POSTMENOPAUSAL
     Dosage: UNK
     Route: 065
     Dates: start: 2016
  2. CIPROLEX [Concomitant]
     Active Substance: CIPROFLOXACIN HYDROCHLORIDE
     Indication: DEPRESSION
     Dosage: 20 MG, UNK
  3. VITAMIN D [Concomitant]
     Active Substance: CHOLECALCIFEROL
     Dosage: 4000 IU, BID
  4. LIPITOR [Concomitant]
     Active Substance: ATORVASTATIN CALCIUM
  5. HYDROMORPHONE [Concomitant]
     Active Substance: HYDROMORPHONE

REACTIONS (3)
  - Cystitis [Unknown]
  - Hypersensitivity [Unknown]
  - Gastritis [Unknown]
